FAERS Safety Report 8103551-1 (Version None)
Quarter: 2012Q1

REPORT INFORMATION
  Report Type: 
  Country: None (occurrence: None)
  Receive Date: 20120201
  Receipt Date: 20120126
  Transmission Date: 20120608
  Serious: Yes (Other)
  Sender: FDA-Public Use
  Company Number: US-PFIZER INC-2011082617

PATIENT
  Sex: Female
  Weight: 25.9 kg

DRUGS (4)
  1. ALBUTEROL [Concomitant]
     Indication: ASTHMA
     Dosage: INHALER, GIVEN PRN
     Route: 048
  2. NAPROXEN [Suspect]
     Dosage: 187.5 MG, 2X/DAY
     Dates: start: 20091101, end: 20101001
  3. SINGULAIR [Concomitant]
     Indication: ASTHMA
     Dosage: 5 MG, 1X/DAY
     Route: 048
  4. CELECOXIB [Suspect]
     Indication: ARTHRITIS
     Dosage: 100 MG, 1X/DAY
     Route: 048
     Dates: start: 20101001, end: 20101108

REACTIONS (2)
  - CHOLANGITIS SCLEROSING [None]
  - COLITIS ULCERATIVE [None]
